FAERS Safety Report 12975219 (Version 1)
Quarter: 2016Q4

REPORT INFORMATION
  Report Type: Spontaneous
  Country: US (occurrence: US)
  Receive Date: 20161123
  Receipt Date: 20161123
  Transmission Date: 20170207
  Serious: No
  Sender: FDA-Public Use
  Company Number: None

PATIENT
  Age: 69 Year
  Sex: Male
  Weight: 100 kg

DRUGS (11)
  1. DIGOXIN. [Concomitant]
     Active Substance: DIGOXIN
  2. HYDROCHLOROTHIAZIDE. [Concomitant]
     Active Substance: HYDROCHLOROTHIAZIDE
  3. FINASTERIDE. [Concomitant]
     Active Substance: FINASTERIDE
  4. WARFARIN [Suspect]
     Active Substance: WARFARIN
     Indication: ATRIAL FIBRILLATION
     Dosage: OTHER FREQUENCY:SEE NARRATIVE; - 7.5 MG MON + WED, 5 MG ALL OTHER DAYS.?
     Route: 048
     Dates: start: 20160809, end: 20161024
  5. METOPROLOL TARTRATE. [Concomitant]
     Active Substance: METOPROLOL TARTRATE
  6. METFORMIN [Concomitant]
     Active Substance: METFORMIN HYDROCHLORIDE
  7. LISINOPRIL. [Concomitant]
     Active Substance: LISINOPRIL
  8. CELECOXIB. [Concomitant]
     Active Substance: CELECOXIB
  9. DILTIAZEM. [Concomitant]
     Active Substance: DILTIAZEM
  10. ATORVASTATIN [Concomitant]
     Active Substance: ATORVASTATIN
  11. ALFUZOSIN [Concomitant]
     Active Substance: ALFUZOSIN

REACTIONS (2)
  - Anticoagulation drug level below therapeutic [None]
  - Product measured potency issue [None]

NARRATIVE: CASE EVENT DATE: 20161024
